FAERS Safety Report 23291260 (Version 1)
Quarter: 2023Q4

REPORT INFORMATION
  Report Type: Spontaneous
  Country: CN (occurrence: CN)
  Receive Date: 20231213
  Receipt Date: 20231213
  Transmission Date: 20240110
  Serious: Yes (Other)
  Sender: FDA-Public Use
  Company Number: CN-BAXTER-2023BAX037633

PATIENT
  Age: 59 Year
  Sex: Male
  Weight: 58.4 kg

DRUGS (6)
  1. CIPROFLOXACIN [Suspect]
     Active Substance: CIPROFLOXACIN
     Indication: Methylobacterium infection
     Dosage: 0.4 G Q12H
     Route: 042
  2. CIPROFLOXACIN [Suspect]
     Active Substance: CIPROFLOXACIN
     Dosage: 0.2 G Q12H
     Route: 042
  3. CEFTAZIDIME [Concomitant]
     Active Substance: CEFTAZIDIME
     Indication: Peritonitis
     Dosage: 1.0 G, Q.D.
     Route: 042
  4. PREDNISONE [Concomitant]
     Active Substance: PREDNISONE
     Indication: Immunosuppressant drug therapy
     Dosage: 50MG TABLETS, Q.D.
     Route: 048
  5. MEROPENEM [Concomitant]
     Active Substance: MEROPENEM
     Indication: Peritonitis
     Dosage: 1.0 G, Q12H
     Route: 042
  6. AMIKACIN [Concomitant]
     Active Substance: AMIKACIN
     Indication: Methylobacterium infection
     Dosage: 0.4 G, Q.D.
     Route: 042

REACTIONS (2)
  - Delirium [Unknown]
  - Mania [Unknown]
